FAERS Safety Report 8780137 (Version 1)
Quarter: 2012Q4

REPORT INFORMATION
  Report Type: 
  Country: US (occurrence: None)
  Receive Date: 20120831
  Receipt Date: 20120831
  Transmission Date: 20130627
  Serious: Yes (Hospitalization)
  Sender: FDA-Public Use
  Company Number: None

PATIENT
  Sex: Female
  Weight: 102.27 kg

DRUGS (1)
  1. CARBOPLATIN [Suspect]

REACTIONS (7)
  - Dizziness [None]
  - Fall [None]
  - Urinary tract infection [None]
  - Atrial fibrillation [None]
  - Myocardial oedema [None]
  - Cardiomegaly [None]
  - Blood potassium decreased [None]
